FAERS Safety Report 6620539-8 (Version None)
Quarter: 2010Q1

REPORT INFORMATION
  Report Type: 
  Country: None (occurrence: None)
  Receive Date: 20100309
  Receipt Date: 20100303
  Transmission Date: 20100710
  Serious: Yes (Death, Hospitalization)
  Sender: FDA-Public Use
  Company Number: TR-ELI_LILLY_AND_COMPANY-TR200903006543

PATIENT
  Age: 63 Year
  Sex: Male

DRUGS (3)
  1. HUMALOG MIX 75/25 [Suspect]
     Indication: TYPE 2 DIABETES MELLITUS
     Dosage: 10 U, EACH MORNING
     Route: 058
     Dates: start: 20060330, end: 20090319
  2. HUMALOG MIX 75/25 [Suspect]
     Dosage: 20 U, EACH EVENING
     Route: 058
     Dates: start: 20060330, end: 20090319
  3. COUMADIN [Concomitant]
     Indication: ARTERIOSCLEROSIS
     Dosage: UNK, DAILY (1/D)
     Route: 065
     Dates: end: 20080716

REACTIONS (1)
  - LUNG INFECTION [None]
